FAERS Safety Report 25279462 (Version 2)
Quarter: 2025Q2

REPORT INFORMATION
  Report Type: Spontaneous
  Country: US (occurrence: US)
  Receive Date: 20250507
  Receipt Date: 20250619
  Transmission Date: 20250717
  Serious: Yes (Other)
  Sender: GLAXOSMITHKLINE
  Company Number: US-GLAXOSMITHKLINE INC-US2025052625

PATIENT
  Age: 58 Year
  Sex: Female

DRUGS (5)
  1. BENLYSTA [Suspect]
     Active Substance: BELIMUMAB
     Indication: Systemic lupus erythematosus
     Dosage: 200 MG, WE
  2. OXYCODONE [Concomitant]
     Active Substance: OXYCODONE
     Indication: Pain
  3. HUMALOG [Concomitant]
     Active Substance: INSULIN LISPRO
     Indication: Diabetes mellitus
  4. GABAPENTIN [Concomitant]
     Active Substance: GABAPENTIN
     Indication: Pain
  5. LOSARTAN [Concomitant]
     Active Substance: LOSARTAN
     Indication: Hypertension

REACTIONS (8)
  - Systemic lupus erythematosus [Recovered/Resolved]
  - Abdominal pain [Recovering/Resolving]
  - Injection site swelling [Recovered/Resolved]
  - Urinary tract infection [Recovering/Resolving]
  - Blister [Recovered/Resolved]
  - Injection site pain [Recovered/Resolved]
  - Injection site discolouration [Not Recovered/Not Resolved]
  - Gastrointestinal injury [Recovered/Resolved]

NARRATIVE: CASE EVENT DATE: 20250401
